FAERS Safety Report 16688670 (Version 1)
Quarter: 2019Q3

REPORT INFORMATION
  Report Type: Spontaneous
  Country: US (occurrence: US)
  Receive Date: 20190809
  Receipt Date: 20190809
  Transmission Date: 20191004
  Serious: No
  Sender: FDA-Public Use
  Company Number: US-PURDUE-USA-2019-0147531

PATIENT
  Sex: Male

DRUGS (2)
  1. BUPRENORPHINE TRANSDERMAL PATCH (SIMILAR TO NDA 21-306) [Suspect]
     Active Substance: BUPRENORPHINE
     Indication: PRODUCT USED FOR UNKNOWN INDICATION
     Dosage: 10 MCG/HR, WEEKLY
     Route: 062
     Dates: start: 201902
  2. OXYCODONE/ ACETAMINOPHEN TABLETS [Interacting]
     Active Substance: ACETAMINOPHEN\OXYCODONE HYDROCHLORIDE
     Indication: BREAKTHROUGH PAIN
     Dosage: 10 /325 MG, QID PRN
     Route: 048

REACTIONS (2)
  - Inhibitory drug interaction [Unknown]
  - Inadequate analgesia [Unknown]
